FAERS Safety Report 11013801 (Version 2)
Quarter: 2015Q2

REPORT INFORMATION
  Report Type: Spontaneous
  Country: US (occurrence: US)
  Receive Date: 20150412
  Receipt Date: 20150526
  Transmission Date: 20150821
  Serious: No
  Sender: FDA-Public Use
  Company Number: US-JNJFOC-20150209197

PATIENT

DRUGS (5)
  1. H2-RECEPTOR ANTAGONISTS [Interacting]
     Active Substance: UNSPECIFIED INGREDIENT
     Indication: HIV TEST POSITIVE
     Route: 065
  2. RILPIVIRINE HYDROCHLORIDE [Suspect]
     Active Substance: RILPIVIRINE HYDROCHLORIDE
     Indication: HIV TEST POSITIVE
     Route: 065
  3. PROTON PUMP INHIBITORS [Interacting]
     Active Substance: UNSPECIFIED INGREDIENT
     Indication: HIV TEST POSITIVE
     Route: 065
  4. ANTIFUNGALS [Interacting]
     Active Substance: UNSPECIFIED INGREDIENT
     Indication: HIV TEST POSITIVE
     Route: 065
  5. PROTEASE INHIBITORS [Interacting]
     Active Substance: UNSPECIFIED INGREDIENT
     Indication: HIV TEST POSITIVE
     Route: 065

REACTIONS (1)
  - Drug interaction [Unknown]
